FAERS Safety Report 7096807-5 (Version None)
Quarter: 2010Q4

REPORT INFORMATION
  Report Type: 
  Country: None (occurrence: None)
  Receive Date: 20101111
  Receipt Date: 20100426
  Transmission Date: 20110411
  Serious: No
  Sender: FDA-Public Use
  Company Number: US-KINGPHARMUSA00001-K201000498

PATIENT
  Sex: Female
  Weight: 56.236 kg

DRUGS (4)
  1. FLECTOR [Suspect]
     Indication: CERVICAL SPINAL STENOSIS
     Dosage: 1 PATCH, QPM PRN
     Route: 061
     Dates: start: 20100401, end: 20100401
  2. FLECTOR [Suspect]
     Indication: BACK PAIN
  3. MORPHINE [Concomitant]
     Indication: PAIN
     Dosage: UNK, VIA SPINAL PUMP IMPLANTED IN ABDOMEN
  4. HYDROCODONE [Concomitant]
     Indication: PAIN
     Dosage: 5/500 MG, PRN

REACTIONS (2)
  - APPLICATION SITE BURN [None]
  - APPLICATION SITE PAIN [None]
